FAERS Safety Report 22603656 (Version 1)
Quarter: 2023Q2

REPORT INFORMATION
  Report Type: Spontaneous
  Country: US (occurrence: US)
  Receive Date: 20230615
  Receipt Date: 20230615
  Transmission Date: 20230721
  Serious: No
  Sender: FDA-Public Use
  Company Number: US-AMGEN-USASP2023102573

PATIENT
  Age: 84 Year
  Sex: Female

DRUGS (1)
  1. EVENITY [Suspect]
     Active Substance: ROMOSOZUMAB-AQQG
     Indication: Osteoporosis postmenopausal
     Dosage: UNK
     Route: 065
     Dates: end: 2023

REACTIONS (6)
  - Peripheral swelling [Unknown]
  - Headache [Unknown]
  - Rash [Unknown]
  - Asthenia [Unknown]
  - Wheezing [Unknown]
  - Bone densitometry [Unknown]

NARRATIVE: CASE EVENT DATE: 20230517
